FAERS Safety Report 9085083 (Version 1)
Quarter: 2013Q1

REPORT INFORMATION
  Report Type: Report from Study
  Country: US (occurrence: US)
  Receive Date: 20130130
  Receipt Date: 20130130
  Transmission Date: 20140127
  Serious: No
  Sender: FDA-Public Use
  Company Number: US-ABBOTT-12P-163-0984315-00

PATIENT
  Age: 60 Year
  Sex: Female

DRUGS (15)
  1. HUMIRA [Suspect]
     Indication: RHEUMATOID ARTHRITIS
     Dates: start: 20120901
  2. GLUCOPHAGE [Concomitant]
     Indication: DIABETES MELLITUS
  3. NORVASC [Concomitant]
     Indication: HYPERTENSION
  4. XANAX [Concomitant]
     Indication: ANXIETY
     Dosage: AS NEEDED
  5. XANAX [Concomitant]
     Indication: PANIC ATTACK
  6. ATENOLOL [Concomitant]
     Indication: HYPERTENSION
  7. SYNTHROID [Concomitant]
     Indication: THYROIDECTOMY
  8. FOLIC ACID [Concomitant]
     Indication: PRODUCT USED FOR UNKNOWN INDICATION
  9. SPIRIVA [Concomitant]
     Indication: CHRONIC OBSTRUCTIVE PULMONARY DISEASE
     Dosage: 1 INHALATION DAILY
     Route: 055
  10. IBUPROFEN [Concomitant]
     Indication: PAIN
     Dosage: PATIENT SAYS SHE TAKES IT 1/2 TAB AT A TIME
  11. NEXIUM [Concomitant]
     Indication: DYSPEPSIA
  12. NEXIUM [Concomitant]
     Indication: GASTROOESOPHAGEAL REFLUX DISEASE
  13. NEXIUM [Concomitant]
     Indication: HIATUS HERNIA
  14. VIT D [Concomitant]
     Indication: PRODUCT USED FOR UNKNOWN INDICATION
  15. OXYGEN [Concomitant]
     Indication: SLEEP APNOEA SYNDROME
     Dosage: AT NIGHT

REACTIONS (1)
  - Muscle spasms [Recovered/Resolved]
